FAERS Safety Report 10422861 (Version 1)
Quarter: 2014Q3

REPORT INFORMATION
  Report Type: Spontaneous
  Country: AU (occurrence: AU)
  Receive Date: 20140902
  Receipt Date: 20140902
  Transmission Date: 20150326
  Serious: Yes (Other)
  Sender: FDA-Public Use
  Company Number: AU-ASTRAZENECA-2014SE64166

PATIENT
  Age: 10649 Day
  Sex: Female

DRUGS (10)
  1. AMOXYCILLIN SODIUM [Suspect]
     Active Substance: AMOXICILLIN SODIUM
     Route: 042
     Dates: start: 20140625, end: 20140625
  2. COPHENYLCAINE FORTE [Suspect]
     Active Substance: LIDOCAINE\PHENYLEPHRINE
     Route: 045
     Dates: start: 20140625, end: 20140625
  3. ONDASETRON HYDROCHLORIDE [Suspect]
     Active Substance: ONDANSETRON HYDROCHLORIDE
     Route: 042
     Dates: start: 20140625, end: 20140625
  4. SERTRALINE HYDROCHLORIDE. [Concomitant]
     Active Substance: SERTRALINE HYDROCHLORIDE
     Route: 048
  5. DEXAMETHASONE. [Suspect]
     Active Substance: DEXAMETHASONE
     Route: 042
     Dates: start: 20140625, end: 20140625
  6. DYNASTAT [Suspect]
     Active Substance: PARECOXIB SODIUM
     Route: 042
     Dates: start: 20140625, end: 20140625
  7. YASMIN [Concomitant]
     Active Substance: DROSPIRENONE\ETHINYL ESTRADIOL
     Route: 048
  8. NEXIUM [Suspect]
     Active Substance: ESOMEPRAZOLE MAGNESIUM
     Route: 048
     Dates: start: 20140625, end: 20140625
  9. MELOXICAM. [Concomitant]
     Active Substance: MELOXICAM
     Route: 048
  10. EMLA [Suspect]
     Active Substance: LIDOCAINE\PRILOCAINE
     Dosage: ONCE/SINGLE ADMINISTRATION
     Route: 061
     Dates: start: 20140625, end: 20140625

REACTIONS (1)
  - Generalised tonic-clonic seizure [Recovered/Resolved with Sequelae]

NARRATIVE: CASE EVENT DATE: 20140625
